FAERS Safety Report 8490519-9 (Version None)
Quarter: 2012Q3

REPORT INFORMATION
  Report Type: 
  Country: None (occurrence: None)
  Receive Date: 20120705
  Receipt Date: 20120702
  Transmission Date: 20120928
  Serious: Yes (Death, Other)
  Sender: FDA-Public Use
  Company Number: PHHY2012GB053680

PATIENT
  Age: 40 Year
  Sex: Male

DRUGS (9)
  1. ADCAL-D3 [Concomitant]
     Dosage: 1 DF, BID
     Route: 048
     Dates: start: 20110808
  2. HUMIRA [Concomitant]
     Dosage: 40 MG
     Route: 030
     Dates: start: 20111005
  3. LANSOPRAZOLE [Concomitant]
     Dosage: 30 MG, QD
     Dates: start: 20111019
  4. CLARITHROMYCIN [Interacting]
     Indication: LOWER RESPIRATORY TRACT INFECTION
     Dosage: 500 MG, BID
     Route: 048
     Dates: start: 20111028
  5. METHADONE HCL [Suspect]
     Indication: PAIN
     Dosage: 90 MG, QD
     Route: 048
     Dates: start: 20111025, end: 20111030
  6. VENTOLIN [Concomitant]
  7. DIAZEPAM [Concomitant]
     Dosage: 2 MG, (AS NECESSARY)
     Route: 048
     Dates: start: 20111019
  8. MULTI-VITAMIN [Concomitant]
  9. ORAMORPH SR [Concomitant]
     Dosage: 100 MG, QD
     Route: 048
     Dates: start: 20110707, end: 20111025

REACTIONS (2)
  - DEATH [None]
  - INHIBITORY DRUG INTERACTION [None]
